FAERS Safety Report 6786598-7 (Version None)
Quarter: 2010Q2

REPORT INFORMATION
  Report Type: 
  Country: None (occurrence: None)
  Receive Date: 20100623
  Receipt Date: 20100616
  Transmission Date: 20101027
  Serious: Yes (Hospitalization)
  Sender: FDA-Public Use
  Company Number: US-JNJFOC-20100605771

PATIENT
  Sex: Female
  Weight: 34.5 kg

DRUGS (9)
  1. INFLIXIMAB [Suspect]
     Indication: CROHN'S DISEASE
     Route: 042
  2. INFLIXIMAB [Suspect]
     Route: 042
  3. HUMIRA [Concomitant]
  4. FERROUS SULFATE TAB [Concomitant]
  5. VITAMIN TAB [Concomitant]
  6. PREVACID [Concomitant]
  7. CALCIUM CARBONATE [Concomitant]
  8. HYDROCORTISONE [Concomitant]
  9. BUDESONIDE [Concomitant]

REACTIONS (1)
  - CROHN'S DISEASE [None]
